FAERS Safety Report 9462594 (Version 1)
Quarter: 2013Q3

REPORT INFORMATION
  Report Type: Spontaneous
  Country: US (occurrence: US)
  Receive Date: 20130816
  Receipt Date: 20130816
  Transmission Date: 20140515
  Serious: Yes (Other)
  Sender: FDA-Public Use
  Company Number: US-BRISTOL-MYERS SQUIBB COMPANY-19181627

PATIENT
  Age: 48 Year
  Sex: Female
  Weight: 68.93 kg

DRUGS (7)
  1. ABATACEPT SUBQ INJECTION 125MG/ML [Suspect]
     Route: 058
     Dates: start: 201306
  2. SYNTHROID [Concomitant]
  3. ALBUTEROL [Concomitant]
  4. ALPRAZOLAM [Concomitant]
  5. FOLIC ACID [Concomitant]
  6. VITAMIN D [Concomitant]
  7. METHOTREXATE [Concomitant]

REACTIONS (5)
  - Lip blister [Unknown]
  - Gingivitis [Unknown]
  - Pain in jaw [Unknown]
  - Urinary tract infection [Unknown]
  - Contusion [Unknown]
